FAERS Safety Report 6581366-3 (Version None)
Quarter: 2010Q1

REPORT INFORMATION
  Report Type: 
  Country: None (occurrence: None)
  Receive Date: 20100215
  Receipt Date: 20100203
  Transmission Date: 20100710
  Serious: Yes (Hospitalization)
  Sender: FDA-Public Use
  Company Number: FR-JNJFOC-20100201488

PATIENT
  Age: 56 Year
  Sex: Male

DRUGS (20)
  1. TAVANIC [Suspect]
     Indication: DRUG USE FOR UNKNOWN INDICATION
     Route: 042
  2. DOLIPRANE [Suspect]
     Indication: DRUG USE FOR UNKNOWN INDICATION
     Route: 048
  3. LOVENOX [Suspect]
     Indication: DRUG USE FOR UNKNOWN INDICATION
     Route: 058
  4. ROCEPHIN [Suspect]
     Indication: LUNG DISORDER
     Route: 042
  5. MOXIFLOXACIN HCL [Suspect]
     Indication: LUNG DISORDER
     Route: 042
  6. ZECLAR [Suspect]
     Indication: PNEUMONIA LEGIONELLA
     Route: 042
  7. PERFALGAN [Suspect]
     Indication: DRUG USE FOR UNKNOWN INDICATION
     Route: 042
  8. CIPLOX [Suspect]
     Indication: LUNG DISORDER
     Route: 042
  9. TAZOCILLINE [Suspect]
     Indication: STAPHYLOCOCCAL INFECTION
     Route: 042
  10. AERIUS [Suspect]
     Indication: DRUG USE FOR UNKNOWN INDICATION
     Route: 048
  11. VENOFER [Suspect]
     Indication: DRUG USE FOR UNKNOWN INDICATION
     Route: 048
  12. TPN [Suspect]
     Indication: DRUG USE FOR UNKNOWN INDICATION
     Route: 065
  13. ZYVOXID [Suspect]
     Indication: DRUG USE FOR UNKNOWN INDICATION
     Route: 048
  14. OMEPRAZOLE [Suspect]
     Indication: PROPHYLAXIS AGAINST GASTROINTESTINAL ULCER
     Route: 048
  15. CILASTATIN W/IMIPENEM [Suspect]
     Indication: STAPHYLOCOCCAL INFECTION
     Route: 042
  16. TRIFLUCAN [Concomitant]
     Route: 065
  17. ATARAX [Concomitant]
     Route: 065
  18. TINZAPARIN SODIUM [Concomitant]
     Route: 065
  19. SUCRALFATE [Concomitant]
     Route: 065
  20. SOLU-MEDROL [Concomitant]
     Route: 065

REACTIONS (6)
  - CYTOLYTIC HEPATITIS [None]
  - HAIRY CELL LEUKAEMIA [None]
  - JAUNDICE [None]
  - PRURIGO [None]
  - PSEUDOMONAS INFECTION [None]
  - STAPHYLOCOCCAL INFECTION [None]
